FAERS Safety Report 11359560 (Version 1)
Quarter: 2015Q3

REPORT INFORMATION
  Report Type: Spontaneous
  Country: US (occurrence: None)
  Receive Date: 20150807
  Receipt Date: 20150807
  Transmission Date: 20151125
  Serious: Yes (Hospitalization)
  Sender: FDA-Public Use
  Company Number: None

PATIENT
  Age: 85 Year
  Sex: Female
  Weight: 63.5 kg

DRUGS (8)
  1. TRIAZOLAM. [Suspect]
     Active Substance: TRIAZOLAM
     Indication: ANXIETY DISORDER
     Dosage: 1 PILL
     Route: 048
  2. COREG [Concomitant]
     Active Substance: CARVEDILOL
  3. VITAMINS [Concomitant]
     Active Substance: VITAMINS
  4. PRAVASTATIN [Concomitant]
     Active Substance: PRAVASTATIN\PRAVASTATIN SODIUM
  5. CALCIUM [Concomitant]
     Active Substance: CALCIUM
  6. MYBETRIQ [Concomitant]
  7. ASPIRIN. [Concomitant]
     Active Substance: ASPIRIN
  8. FIBER [Concomitant]
     Active Substance: PSYLLIUM HUSK

REACTIONS (1)
  - Loss of consciousness [None]

NARRATIVE: CASE EVENT DATE: 20150527
